APPROVED DRUG PRODUCT: CEFAZOLIN SODIUM
Active Ingredient: CEFAZOLIN SODIUM
Strength: EQ 1GM BASE/VIAL **Federal Register determination that product was not discontinued or withdrawn for safety or effectiveness reasons**
Dosage Form/Route: INJECTABLE;INJECTION
Application: A064169 | Product #002
Applicant: FRESENIUS KABI USA LLC
Approved: Aug 14, 1998 | RLD: No | RS: No | Type: DISCN